FAERS Safety Report 10181975 (Version 4)
Quarter: 2014Q3

REPORT INFORMATION
  Report Type: Report from Study
  Country: US (occurrence: US)
  Receive Date: 20140519
  Receipt Date: 20140702
  Transmission Date: 20150326
  Serious: Yes (Life-Threatening, Hospitalization)
  Sender: FDA-Public Use
  Company Number: US-EXELIXIS-CABO-14004199

PATIENT
  Sex: Male
  Weight: 98 kg

DRUGS (3)
  1. CABOZANTINIB [Suspect]
     Active Substance: CABOZANTINIB
     Indication: THYROID CANCER
     Dosage: 100 MG, QD
     Route: 048
     Dates: start: 20140412, end: 20140424
  2. LISINOPRIL. [Concomitant]
     Active Substance: LISINOPRIL
  3. COREG [Concomitant]
     Active Substance: CARVEDILOL

REACTIONS (5)
  - Drug interaction [Unknown]
  - Back pain [Unknown]
  - Dysgeusia [Unknown]
  - Hyponatraemia [Recovered/Resolved]
  - Loss of consciousness [Unknown]

NARRATIVE: CASE EVENT DATE: 2014
